FAERS Safety Report 21208054 (Version 4)
Quarter: 2022Q3

REPORT INFORMATION
  Report Type: Report from Study
  Country: US (occurrence: US)
  Receive Date: 20220812
  Receipt Date: 20220913
  Transmission Date: 20221026
  Serious: Yes (Death, Hospitalization, Disabling, Other)
  Sender: FDA-Public Use
  Company Number: US-GILEAD-2022-0593299

PATIENT
  Age: 72 Year
  Sex: Male

DRUGS (3)
  1. IDELALISIB [Suspect]
     Active Substance: IDELALISIB
     Indication: Chronic lymphocytic leukaemia recurrent
     Dosage: 150 MG, BID
     Route: 048
     Dates: start: 20200822, end: 20220818
  2. VITAMIN D3 [Concomitant]
     Active Substance: CHOLECALCIFEROL
  3. SERTRALINE [Concomitant]
     Active Substance: SERTRALINE HYDROCHLORIDE

REACTIONS (14)
  - Drug ineffective [Not Recovered/Not Resolved]
  - Death [Fatal]
  - Seizure [Recovered/Resolved]
  - Loss of personal independence in daily activities [Unknown]
  - Leukaemia [Unknown]
  - Pneumonia [Recovered/Resolved]
  - Lymphadenopathy [Unknown]
  - Transfusion [Unknown]
  - Full blood count decreased [Unknown]
  - Product dose omission issue [Unknown]
  - Red blood cell count abnormal [Unknown]
  - White blood cell count abnormal [Unknown]
  - Abdominal pain upper [Unknown]
  - Dysstasia [Unknown]

NARRATIVE: CASE EVENT DATE: 20220818
